FAERS Safety Report 10040199 (Version 2)
Quarter: 2014Q2

REPORT INFORMATION
  Report Type: Report from Study
  Country: US (occurrence: US)
  Receive Date: 20140327
  Receipt Date: 20140409
  Transmission Date: 20141212
  Serious: Yes (Death, Hospitalization)
  Sender: FDA-Public Use
  Company Number: US-AMGEN-USACT2014020886

PATIENT
  Age: 69 Year
  Sex: Female

DRUGS (43)
  1. MAGNESIUM OXIDE [Concomitant]
     Dosage: 800 MG, 2 IN 1D
     Route: 048
     Dates: start: 20130507, end: 20130507
  2. CISATRACURIUM BESILATE [Concomitant]
     Dosage: 7 MG, UNK
     Route: 042
     Dates: start: 20131223, end: 20131224
  3. AMOXICILLIN [Concomitant]
     Dosage: UNK
     Route: 048
     Dates: start: 20131220, end: 20131222
  4. CHLORHEXIDINE [Concomitant]
     Dosage: UNK
  5. ETANERCEPT [Suspect]
     Indication: RHEUMATOID ARTHRITIS
     Dosage: 50 MG, QWK
     Route: 058
     Dates: start: 20120911, end: 20131217
  6. BENADRYL                           /00000402/ [Concomitant]
     Indication: DERMATITIS ALLERGIC
     Dosage: 50 MG, 4 IN 1 D
     Route: 048
     Dates: start: 20130112, end: 20130114
  7. CYANOCOBALAMIN [Concomitant]
     Dosage: 1 ML, 1 IN 1 M
     Route: 030
     Dates: start: 1997, end: 20131224
  8. CYMBALTA [Concomitant]
     Indication: DEPRESSION
     Dosage: 60 MG, QMO
     Route: 048
     Dates: start: 2009, end: 20130415
  9. CYMBALTA [Concomitant]
     Dosage: 60 MG, QMO
     Route: 048
     Dates: start: 20130610, end: 20130620
  10. CORTIZONE                          /00028601/ [Concomitant]
     Indication: RASH
     Dosage: UNK UNK, QD
     Route: 061
     Dates: start: 20121129, end: 20131224
  11. LEFLUNOMIDE [Concomitant]
     Indication: RHEUMATOID ARTHRITIS
     Dosage: 20 MG, QD
     Route: 048
     Dates: start: 2011, end: 201201
  12. LEFLUNOMIDE [Concomitant]
     Dosage: 10 MG, QD
     Route: 048
     Dates: start: 20131028
  13. PREDNISONE [Concomitant]
     Indication: RHEUMATOID ARTHRITIS
     Dosage: 5 MG, QD
     Route: 048
     Dates: start: 2011, end: 20121123
  14. SODIUM CHLORIDE [Concomitant]
     Indication: DEHYDRATION
     Dosage: 1000 ML, ONE TIME DOSE
     Route: 042
     Dates: start: 20130111, end: 20130114
  15. SODIUM CHLORIDE [Concomitant]
     Dosage: 1000 MG, UNK
     Route: 042
     Dates: start: 20130506
  16. SODIUM CHLORIDE [Concomitant]
     Dosage: 40 MUG, UNK
     Route: 042
     Dates: start: 20131222, end: 20131222
  17. SODIUM CHLORIDE [Concomitant]
     Dosage: UNK
     Dates: start: 20131222, end: 20131223
  18. SODIUM CHLORIDE [Concomitant]
     Dosage: 2000 MG, UNK
     Route: 042
     Dates: start: 20131222, end: 20131223
  19. SODIUM CHLORIDE [Concomitant]
     Dosage: 100 MG, UNK
     Route: 042
     Dates: start: 20131223, end: 20131223
  20. SODIUM CHLORIDE [Concomitant]
     Dosage: 2.5 MUG, UNK
     Route: 042
     Dates: start: 20131223, end: 20131223
  21. POTASSIUM CHLORIDE [Concomitant]
     Indication: DEHYDRATION
     Dosage: 1000 ML, UNK
     Route: 042
     Dates: start: 20130111, end: 20130114
  22. POTASSIUM CHLORIDE [Concomitant]
     Dosage: 40 MUG, UNK
     Route: 042
     Dates: start: 20130507, end: 20130509
  23. POTASSIUM CHLORIDE [Concomitant]
     Dosage: 2.5 MUG, UNK
     Route: 042
     Dates: start: 20131222, end: 20131223
  24. POTASSIUM CHLORIDE [Concomitant]
     Dosage: 10 MUG, UNK
     Route: 042
     Dates: start: 20131222, end: 20131224
  25. POTASSIUM CHLORIDE [Concomitant]
     Dosage: 40 MUG, UNK
     Route: 042
     Dates: start: 20131223, end: 20131223
  26. POTASSIUM CHLORIDE [Concomitant]
     Dosage: 20 MUG, UNK
     Route: 042
     Dates: start: 20131223, end: 20131223
  27. ROCEPHIN [Concomitant]
     Indication: UPPER RESPIRATORY TRACT INFECTION
     Dosage: 50 ML, ONE TIME DOSE
     Route: 042
     Dates: start: 20130111, end: 20130112
  28. ZOFRAN                             /00955301/ [Concomitant]
     Indication: NAUSEA
     Dosage: 4 MG, AS NECESSARY
     Route: 042
     Dates: start: 20130111, end: 20130113
  29. ZOFRAN                             /00955301/ [Concomitant]
     Dosage: 4 MG, UNK
     Route: 042
     Dates: start: 20130510, end: 20130510
  30. ZOFRAN                             /00955301/ [Concomitant]
     Dosage: UNK
     Route: 048
     Dates: start: 20131220, end: 20131222
  31. PNEUMOCOCCAL VACCINE [Concomitant]
     Indication: UPPER RESPIRATORY TRACT INFECTION
     Dosage: 0.5 ML, ONE TIME DOSE
     Route: 030
     Dates: start: 20130111, end: 20130111
  32. ASPIRIN [Concomitant]
     Indication: ATRIAL FIBRILLATION
     Dosage: 162 MG, UNK
     Route: 048
     Dates: start: 20130406, end: 20130506
  33. ASPIRIN [Concomitant]
     Dosage: 81 MG, UNK
     Dates: start: 20130507
  34. ASPIRIN [Concomitant]
     Dosage: 300 MG, UNK
     Route: 054
     Dates: start: 20131223, end: 20131223
  35. STERILE WATER [Concomitant]
     Dosage: UNK
  36. CARAFATE [Concomitant]
     Dosage: UNK
  37. ACETAMINOPHEN [Concomitant]
     Indication: NAUSEA
     Dosage: 600 MG, UNK
     Dates: start: 20130111, end: 20130112
  38. AZITHROMYCIN [Concomitant]
     Indication: UPPER RESPIRATORY TRACT INFECTION
     Dosage: 250 MG, QD
     Route: 048
     Dates: start: 20030114, end: 20130119
  39. SEROQUEL [Concomitant]
     Indication: DEPRESSION
     Dosage: 100 MG, QD
     Route: 048
     Dates: start: 20130709, end: 20130804
  40. METHYLPREDNISOLON                  /00049601/ [Concomitant]
     Indication: RHEUMATOID ARTHRITIS
     Dosage: 4 MG, QD
     Route: 048
     Dates: start: 20130805, end: 20130812
  41. MOXICILLIN [Concomitant]
     Indication: CYSTITIS
     Dosage: 500 MG, BID
     Route: 048
     Dates: start: 20130925, end: 20131004
  42. OMEPRAZOLE [Concomitant]
     Indication: HIATUS HERNIA
     Dosage: 40 MG, QD
     Route: 048
     Dates: start: 20131010
  43. PROPOFOL [Concomitant]
     Dosage: 19 ML, UNK
     Route: 042
     Dates: start: 20131222, end: 20131224

REACTIONS (6)
  - Cardiac arrest [Fatal]
  - Ventricular fibrillation [Recovered/Resolved]
  - Atrial fibrillation [Recovered/Resolved]
  - Hyperglycaemia [Recovered/Resolved]
  - Leukocytosis [Recovered/Resolved]
  - Leukopenia [Recovered/Resolved]
